FAERS Safety Report 18186210 (Version 1)
Quarter: 2020Q3

REPORT INFORMATION
  Report Type: Spontaneous
  Country: DE (occurrence: DE)
  Receive Date: 20200824
  Receipt Date: 20200824
  Transmission Date: 20201103
  Serious: Yes (Hospitalization)
  Sender: FDA-Public Use
  Company Number: DE-TEVA-2020-DE-1816939

PATIENT
  Age: 90 Year
  Sex: Female

DRUGS (5)
  1. METAMIZOL [Concomitant]
     Active Substance: METAMIZOLE SODIUM
     Dosage: 160 GTT DAILY; 1?1?1?1, DROPS
     Route: 048
  2. TELMISARTAN. [Concomitant]
     Active Substance: TELMISARTAN
     Dosage: 80 MILLIGRAM DAILY; 1?0?1?0
     Route: 048
  3. HYDROMORPHON [Suspect]
     Active Substance: HYDROMORPHONE
     Dosage: 12 MILLIGRAM DAILY; 1?0?1?1
     Route: 048
  4. BUDENOFALK 3MG [Concomitant]
     Dosage: 9 MILLIGRAM DAILY; 1?1?1?0
     Route: 048
  5. ZOPICLON [Concomitant]
     Active Substance: ZOPICLONE
     Dosage: 7.5 MILLIGRAM DAILY; 0?0?1?0
     Route: 048

REACTIONS (5)
  - Fracture [Recovering/Resolving]
  - Fall [Recovering/Resolving]
  - Back pain [Recovering/Resolving]
  - Constipation [Recovering/Resolving]
  - Abdominal pain [Recovering/Resolving]
